FAERS Safety Report 15307022 (Version 1)
Quarter: 2018Q3

REPORT INFORMATION
  Report Type: Spontaneous
  Country: US (occurrence: US)
  Receive Date: 20180822
  Receipt Date: 20180822
  Transmission Date: 20181010
  Serious: Yes (Other)
  Sender: FDA-Public Use
  Company Number: US-BAYER-2018-153043

PATIENT
  Sex: Female

DRUGS (2)
  1. CITRACAL PETITES [Suspect]
     Active Substance: CALCIUM CITRATE
     Dosage: UNK
     Route: 048
  2. BAYER ASPIRIN [Suspect]
     Active Substance: ASPIRIN
     Route: 048

REACTIONS (3)
  - Choking [Recovered/Resolved]
  - Product use complaint [Unknown]
  - Drug hypersensitivity [Not Recovered/Not Resolved]
